FAERS Safety Report 12882554 (Version 2)
Quarter: 2016Q4

REPORT INFORMATION
  Report Type: Report from Study
  Country: IT (occurrence: IT)
  Receive Date: 20161025
  Receipt Date: 20161027
  Transmission Date: 20170207
  Serious: Yes (Death, Hospitalization, Other)
  Sender: FDA-Public Use
  Company Number: IT-AMGEN-ITANI2016121071

PATIENT
  Age: 48 Year
  Sex: Male

DRUGS (3)
  1. CARFILZOMIB [Suspect]
     Active Substance: CARFILZOMIB
     Indication: PRODUCT USED FOR UNKNOWN INDICATION
     Dosage: 27 UNK, UNK TWO TIME A WEEK FOR THREE WEEK, EVERY 28 DAYS
     Route: 042
     Dates: start: 20160728
  2. DEXAMETHASONE. [Concomitant]
     Active Substance: DEXAMETHASONE
     Dosage: 20 UNK, UNK TWO DAYS A WEEK
     Route: 048
     Dates: start: 20160728, end: 20160816
  3. REVLIMID [Concomitant]
     Active Substance: LENALIDOMIDE
     Dosage: 10 UNK, QWK
     Route: 048
     Dates: start: 20160728, end: 20160816

REACTIONS (2)
  - Hospitalisation [Not Recovered/Not Resolved]
  - Plasma cell myeloma [Fatal]
